FAERS Safety Report 23429549 (Version 1)
Quarter: 2024Q1

REPORT INFORMATION
  Report Type: Spontaneous
  Country: US (occurrence: US)
  Receive Date: 20240122
  Receipt Date: 20240122
  Transmission Date: 20240410
  Serious: No
  Sender: FDA-Public Use
  Company Number: US-MYLANLABS-2023M1130633

PATIENT
  Sex: Female
  Weight: 66.5 kg

DRUGS (3)
  1. XANAX [Suspect]
     Active Substance: ALPRAZOLAM
     Indication: Anxiety
     Dosage: TAKE 1 TABLET (0.25 MG TOTAL) BY MOUTH DAILY AS NEEDED FOR SLEEP.
     Route: 048
     Dates: start: 20230601
  2. ZOLOFT [Concomitant]
     Active Substance: SERTRALINE HYDROCHLORIDE
     Dosage: 1 DOSAGE FORM, QD (TAKE 1 TABLET (100 MG TOTAL) BY MOUTH DAILY)
     Route: 048
     Dates: start: 20230601
  3. IBRANCE [Concomitant]
     Active Substance: PALBOCICLIB
     Indication: Breast cancer metastatic
     Dosage: 125 MILLIGRAM, 28D CYCLE (TAKE 1 TABLET BY MOUTH DAILY FOR 21 DAYS, FOLLOWED BY 7 DAYS OFF, REPEAT E
     Route: 048
     Dates: start: 20230929, end: 20231019

REACTIONS (1)
  - Off label use [Unknown]
